FAERS Safety Report 4498601-8 (Version None)
Quarter: 2004Q4

REPORT INFORMATION
  Report Type: 
  Country: None (occurrence: None)
  Receive Date: 20041108
  Receipt Date: 20041026
  Transmission Date: 20050328
  Serious: Yes (Other)
  Sender: FDA-Public Use
  Company Number: K200401516

PATIENT
  Age: 79 Year
  Sex: Female
  Weight: 53.5 kg

DRUGS (2)
  1. LEVOXYL [Suspect]
     Indication: HYPOTHYROIDISM
     Dosage: 50 MCG, QD, ORAL
     Route: 048
     Dates: start: 20040901
  2. NEXIUM [Concomitant]

REACTIONS (2)
  - CHOKING [None]
  - ORAL DISCOMFORT [None]
